FAERS Safety Report 22625831 (Version 1)
Quarter: 2023Q2

REPORT INFORMATION
  Report Type: Spontaneous
  Country: PL (occurrence: None)
  Receive Date: 20230621
  Receipt Date: 20230621
  Transmission Date: 20230722
  Serious: Yes (Death)
  Sender: FDA-Public Use
  Company Number: 2023A141990

PATIENT
  Age: 64 Year
  Sex: Female

DRUGS (6)
  1. METOPROLOL [Suspect]
     Active Substance: METOPROLOL
     Indication: Atrial fibrillation
  2. OMEPRAZOLE [Suspect]
     Active Substance: OMEPRAZOLE
     Indication: Pain
  3. PROPAFENONE [Suspect]
     Active Substance: PROPAFENONE
     Indication: Atrial fibrillation
  4. WARFARIN [Suspect]
     Active Substance: WARFARIN
     Indication: Anticoagulant therapy
  5. DIPHENHYDRAMINE [Suspect]
     Active Substance: DIPHENHYDRAMINE
     Indication: Arthralgia
     Dosage: NIGHT
  6. ACETAMINOPHEN [Suspect]
     Active Substance: ACETAMINOPHEN
     Indication: Arthralgia

REACTIONS (1)
  - Subarachnoid haemorrhage [Fatal]
